FAERS Safety Report 12365426 (Version 1)
Quarter: 2016Q2

REPORT INFORMATION
  Report Type: Spontaneous
  Country: US (occurrence: US)
  Receive Date: 20160512
  Receipt Date: 20160512
  Transmission Date: 20160815
  Serious: Yes (Death, Hospitalization, Other)
  Sender: FDA-Public Use
  Company Number: PHHY2016US064485

PATIENT
  Age: 41 Year
  Sex: Female

DRUGS (3)
  1. HYDROXYCARBAMIDE [Suspect]
     Active Substance: HYDROXYUREA
     Indication: CHRONIC MYELOID LEUKAEMIA
     Dosage: UNK
     Route: 065
  2. IMATINIB [Suspect]
     Active Substance: IMATINIB
     Indication: CHRONIC MYELOID LEUKAEMIA
     Dosage: 400 MG, QD
     Route: 065
  3. NILOTINIB [Suspect]
     Active Substance: NILOTINIB
     Indication: CHRONIC MYELOID LEUKAEMIA
     Dosage: UNK
     Route: 065
     Dates: start: 201406

REACTIONS (10)
  - Menorrhagia [Unknown]
  - Erythroleukaemia [Unknown]
  - Chronic myeloid leukaemia transformation [Unknown]
  - Drug ineffective [Unknown]
  - Drug resistance [Unknown]
  - Death [Fatal]
  - Sepsis [Unknown]
  - Marrow hyperplasia [Unknown]
  - Subarachnoid haemorrhage [Unknown]
  - Fatigue [Unknown]
